FAERS Safety Report 7792002-2 (Version None)
Quarter: 2011Q4

REPORT INFORMATION
  Report Type: 
  Country: None (occurrence: None)
  Receive Date: 20111003
  Receipt Date: 20110929
  Transmission Date: 20120403
  Serious: Yes (Other)
  Sender: FDA-Public Use
  Company Number: US-PFIZER INC-2011234225

PATIENT
  Sex: Female

DRUGS (2)
  1. GEODON [Suspect]
     Dosage: UNK
     Route: 048
  2. FLEXERIL [Suspect]
     Dosage: UNK

REACTIONS (1)
  - MUSCULOSKELETAL STIFFNESS [None]
